FAERS Safety Report 14624538 (Version 5)
Quarter: 2018Q2

REPORT INFORMATION
  Report Type: Spontaneous
  Country: GB (occurrence: GB)
  Receive Date: 20180312
  Receipt Date: 20180518
  Transmission Date: 20180711
  Serious: Yes (Other)
  Sender: FDA-Public Use
  Company Number: GB-ABBVIE-18P-167-2282991-00

PATIENT

DRUGS (1)
  1. DEPAKOTE [Suspect]
     Active Substance: DIVALPROEX SODIUM
     Indication: AFFECTIVE DISORDER
     Route: 065

REACTIONS (16)
  - Mania [Unknown]
  - Malaise [Unknown]
  - Mental disorder [Unknown]
  - Photophobia [Unknown]
  - Drug withdrawal syndrome [Unknown]
  - Adverse drug reaction [Unknown]
  - Nausea [Unknown]
  - Skin disorder [Unknown]
  - Epistaxis [Unknown]
  - Nasal disorder [Unknown]
  - Paraesthesia [Unknown]
  - Auditory disorder [Unknown]
  - Respiratory disorder [Unknown]
  - Dizziness [Unknown]
  - Anger [Unknown]
  - Abnormal behaviour [Unknown]
